FAERS Safety Report 10169234 (Version 1)
Quarter: 2014Q2

REPORT INFORMATION
  Report Type: Spontaneous
  Country: US (occurrence: None)
  Receive Date: 20140512
  Receipt Date: 20140512
  Transmission Date: 20141212
  Serious: Yes (Hospitalization)
  Sender: FDA-Public Use
  Company Number: None

PATIENT
  Age: 90 Year
  Sex: Male
  Weight: 110 kg

DRUGS (2)
  1. WARFARIN [Suspect]
     Indication: CORONARY ARTERY DISEASE
     Dates: start: 20130205, end: 20140418
  2. WARFARIN [Suspect]
     Indication: CARDIAC VALVE PROSTHESIS USER
     Dates: start: 20130205, end: 20140418

REACTIONS (4)
  - Fall [None]
  - Subdural haematoma [None]
  - Haemorrhage intracranial [None]
  - Head injury [None]
